FAERS Safety Report 12483290 (Version 2)
Quarter: 2016Q2

REPORT INFORMATION
  Report Type: Report from Study
  Country: EE (occurrence: EE)
  Receive Date: 20160621
  Receipt Date: 20160624
  Transmission Date: 20160815
  Serious: Yes (Hospitalization)
  Sender: FDA-Public Use
  Company Number: EE-ROCHE-1776695

PATIENT
  Age: 72 Year
  Sex: Male
  Weight: 82.2 kg

DRUGS (7)
  1. BETALOC [Concomitant]
     Active Substance: METOPROLOL TARTRATE
     Dosage: ONGOING ON 26/APR/2016
     Route: 048
     Dates: start: 2005
  2. AMLODIPIN [Concomitant]
     Active Substance: AMLODIPINE BESYLATE
     Indication: HYPERTENSION
     Dosage: ONGOING ON 26/APR/2016
     Route: 048
     Dates: start: 2005
  3. CARDACE (ESTONIA) [Concomitant]
     Dosage: ONGOING ON 26/APR/2016.
     Route: 048
  4. PERTUZUMAB [Suspect]
     Active Substance: PERTUZUMAB
     Indication: HER-2 POSITIVE GASTRIC CANCER
     Dosage: DATE OF MOST RECENT DOSE OF TRASTUZUMAB PRIOR TO SAE:18/JAN/2016?DAY 1 3 WEEKLY
     Route: 042
     Dates: start: 20151207, end: 20160526
  5. TRASTUZUMAB [Suspect]
     Active Substance: TRASTUZUMAB
     Indication: HER-2 POSITIVE GASTRIC CANCER
     Dosage: DATE OF MOST RECENT DOSE OF TRASTUZUMAB PRIOR TO SAE:18/JAN/2016?DAY 1 3 WEEKLY
     Route: 042
     Dates: start: 20151207, end: 20160526
  6. CISPLATIN. [Suspect]
     Active Substance: CISPLATIN
     Indication: HER-2 POSITIVE GASTRIC CANCER
     Dosage: DATE OF MOST RECENT DOSE OF TRASTUZUMAB PRIOR TO SAE:18/JAN/2016?DAY 1 3 WEEKLY
     Route: 042
     Dates: start: 20151207, end: 20160526
  7. CAPECITABINE. [Suspect]
     Active Substance: CAPECITABINE
     Indication: HER-2 POSITIVE GASTRIC CANCER
     Dosage: DATE OF MOST RECENT DOSE OF TRASTUZUMAB PRIOR TO SAE:31/JAN/2016? D 1- 10 IN 3 WEEKLY
     Route: 048
     Dates: start: 20151207, end: 20160526

REACTIONS (1)
  - Peripheral artery thrombosis [Recovered/Resolved]

NARRATIVE: CASE EVENT DATE: 20160203
